FAERS Safety Report 10082595 (Version 4)
Quarter: 2014Q2

REPORT INFORMATION
  Report Type: Report from Study
  Country: PL (occurrence: PL)
  Receive Date: 20140416
  Receipt Date: 20140516
  Transmission Date: 20141212
  Serious: Yes (Hospitalization)
  Sender: FDA-Public Use
  Company Number: PL-PFIZER INC-2014097499

PATIENT
  Age: 35 Year
  Sex: Female
  Weight: 70 kg

DRUGS (2)
  1. TOFACITINIB CITRATE [Suspect]
     Indication: PSORIASIS
     Dosage: 10 MG, 2X/DAY
     Route: 048
     Dates: start: 20120201, end: 20140403
  2. NUVARING [Concomitant]
     Indication: CONTRACEPTION
     Dosage: MONTHLY
     Route: 067
     Dates: start: 20050115, end: 20140404

REACTIONS (1)
  - Pulmonary embolism [Not Recovered/Not Resolved]
